FAERS Safety Report 5740947-7 (Version None)
Quarter: 2008Q2

REPORT INFORMATION
  Report Type: 
  Country: None (occurrence: None)
  Receive Date: 20080515
  Receipt Date: 20080327
  Transmission Date: 20081010
  Serious: No
  Sender: FDA-Public Use
  Company Number: WAES 0803USA04600

PATIENT
  Sex: Male

DRUGS (10)
  1. ISENTRESS [Suspect]
     Indication: ACQUIRED IMMUNODEFICIENCY SYNDROME
     Dosage: 400 MG/BID/PO
     Route: 048
     Dates: start: 20071129
  2. AZTOR [Concomitant]
  3. REYATAZ [Concomitant]
  4. SEPTRA [Concomitant]
  5. TRUVADA [Concomitant]
  6. ACYCLOVIR [Concomitant]
  7. DARUNAVIR [Concomitant]
  8. RITONAVIR [Concomitant]
  9. TESTOSTERONE [Concomitant]
  10. VITAMIN TAB [Concomitant]

REACTIONS (2)
  - BLOOD ALKALINE PHOSPHATASE INCREASED [None]
  - BLOOD TRIGLYCERIDES INCREASED [None]
